FAERS Safety Report 5653630-3 (Version None)
Quarter: 2008Q1

REPORT INFORMATION
  Report Type: 
  Country: None (occurrence: None)
  Receive Date: 20080306
  Receipt Date: 20080218
  Transmission Date: 20080703
  Serious: Yes (Hospitalization)
  Sender: FDA-Public Use
  Company Number: JP-SANOFI-SYNTHELABO-A01200802223

PATIENT
  Age: 70 Year
  Sex: Female

DRUGS (3)
  1. RESLIN [Concomitant]
     Indication: DELIRIUM
     Route: 048
     Dates: start: 20071220
  2. RESLIN [Concomitant]
     Route: 048
     Dates: end: 20080101
  3. MYSLEE [Suspect]
     Indication: INSOMNIA
     Route: 048
     Dates: start: 20030101, end: 20080101

REACTIONS (2)
  - ALTERED STATE OF CONSCIOUSNESS [None]
  - DELIRIUM [None]
